FAERS Safety Report 18653693 (Version 2)
Quarter: 2021Q2

REPORT INFORMATION
  Report Type: Report from Study
  Country: None (occurrence: AU)
  Receive Date: 20201223
  Receipt Date: 20210624
  Transmission Date: 20210717
  Serious: Yes (Other)
  Sender: FDA-Public Use
  Company Number: AU-ABBVIE-20K-008-3705403-00

PATIENT
  Sex: Female

DRUGS (1)
  1. IMBRUVICA [Suspect]
     Active Substance: IBRUTINIB
     Indication: CHRONIC LYMPHOCYTIC LEUKAEMIA
     Route: 048
     Dates: start: 20191017

REACTIONS (4)
  - Skin disorder [Recovered/Resolved]
  - Uterine haemorrhage [Recovered/Resolved]
  - Uterine disorder [Not Recovered/Not Resolved]
  - Limb injury [Not Recovered/Not Resolved]
